FAERS Safety Report 16610240 (Version 1)
Quarter: 2019Q3

REPORT INFORMATION
  Report Type: Report from Study
  Country: CA (occurrence: CA)
  Receive Date: 20190722
  Receipt Date: 20190722
  Transmission Date: 20191004
  Serious: Yes (Hospitalization)
  Sender: FDA-Public Use
  Company Number: CA-APOPHARMA-2019AP018464

PATIENT
  Sex: Female
  Weight: 55 kg

DRUGS (2)
  1. FERRIPROX [Suspect]
     Active Substance: DEFERIPRONE
     Dosage: 83 MG/KG, UNK
     Route: 048
     Dates: start: 20170927
  2. FERRIPROX [Suspect]
     Active Substance: DEFERIPRONE
     Indication: SICKLE CELL DISEASE
     Dosage: 83 MG/KG, UNK
     Route: 048
     Dates: start: 20170927

REACTIONS (2)
  - Viral infection [Recovered/Resolved]
  - Laboratory test abnormal [Recovered/Resolved]
